FAERS Safety Report 17206341 (Version 2)
Quarter: 2020Q1

REPORT INFORMATION
  Report Type: Spontaneous
  Country: CA (occurrence: CA)
  Receive Date: 20191227
  Receipt Date: 20200109
  Transmission Date: 20200409
  Serious: Yes (Hospitalization, Other)
  Sender: FDA-Public Use
  Company Number: CA-AUROBINDO-AUR-APL-2018-025763

PATIENT
  Age: 70 Year
  Sex: Female

DRUGS (14)
  1. PRAMIPEXOLE. [Suspect]
     Active Substance: PRAMIPEXOLE
     Dosage: 12.5 MILLIGRAM, ONCE A DAY
     Route: 065
  2. QUETIAPINE. [Suspect]
     Active Substance: QUETIAPINE
     Indication: PSYCHOTIC DISORDER
  3. PRAMIPEXOLE. [Suspect]
     Active Substance: PRAMIPEXOLE
     Indication: PARKINSON^S DISEASE
     Dosage: 4.5 MILLIGRAM, ONCE A DAY
     Route: 065
  4. FLORINEF ACETATE [Suspect]
     Active Substance: FLUDROCORTISONE ACETATE
     Indication: PSYCHOTIC DISORDER
     Dosage: 0.1 MILLIGRAM, ONCE A DAY
     Route: 065
  5. ENTACAPONE TABLET [Suspect]
     Active Substance: ENTACAPONE
     Indication: PARKINSON^S DISEASE
     Dosage: 1000 MILLIGRAM
     Route: 065
  6. PRAMIPEXOLE. [Suspect]
     Active Substance: PRAMIPEXOLE
     Dosage: DOSE DECREASED .75MG FROM 1.5MG
     Route: 065
  7. CLOZAPINE. [Suspect]
     Active Substance: CLOZAPINE
     Indication: PSYCHOTIC DISORDER
  8. NABILONE [Suspect]
     Active Substance: NABILONE
     Indication: PARKINSONISM
     Dosage: `1 MILLIGRAM, TWO TIMES A DAY
     Route: 048
  9. AMANTADINE. [Suspect]
     Active Substance: AMANTADINE HYDROCHLORIDE
     Indication: PARKINSONISM
     Dosage: 300 MILLIGRAM, ONCE A DAY
     Route: 065
  10. AMANTADINE. [Suspect]
     Active Substance: AMANTADINE HYDROCHLORIDE
     Indication: PSYCHOTIC DISORDER
  11. QUETIAPINE. [Suspect]
     Active Substance: QUETIAPINE
     Indication: PARKINSONISM
     Dosage: 12.5 MILLIGRAM, DAILY (UNKNOWN DOSE AT BEDTIME)
     Route: 065
  12. ENTACAPONE TABLET [Suspect]
     Active Substance: ENTACAPONE
     Indication: PSYCHOTIC DISORDER
     Dosage: 1000 MILLIGRAM, ONCE A DAY
     Route: 065
  13. CLOZAPINE. [Suspect]
     Active Substance: CLOZAPINE
     Indication: PARKINSONISM
     Dosage: 37.5 MILLIGRAM, ONCE A DAY
     Route: 065
  14. NABILONE [Suspect]
     Active Substance: NABILONE
     Indication: PARKINSON^S DISEASE

REACTIONS (12)
  - Psychotic disorder [Recovered/Resolved]
  - Hallucination, visual [Not Recovered/Not Resolved]
  - Agitation [Recovered/Resolved]
  - Delusion [Recovered/Resolved]
  - Orthostatic hypotension [Recovered/Resolved]
  - Paranoia [Recovered/Resolved]
  - Therapeutic product effect incomplete [Recovering/Resolving]
  - Speech disorder [Recovered/Resolved]
  - Dystonia [Recovered/Resolved]
  - Therapeutic response shortened [Recovering/Resolving]
  - Dyskinesia [Recovered/Resolved]
  - Parkinson^s disease psychosis [Recovering/Resolving]
